FAERS Safety Report 7319444-3 (Version None)
Quarter: 2011Q1

REPORT INFORMATION
  Report Type: 
  Country: None (occurrence: None)
  Receive Date: 20110228
  Receipt Date: 20100326
  Transmission Date: 20110831
  Serious: Yes (Other)
  Sender: FDA-Public Use
  Company Number: A0852185A

PATIENT
  Age: 58 Year
  Sex: Female

DRUGS (10)
  1. LANTUS [Concomitant]
  2. HUMALOG [Concomitant]
  3. LAMICTAL [Suspect]
     Indication: EPILEPSY
     Dosage: 275MG TWICE PER DAY
     Route: 048
     Dates: start: 20060301
  4. LEVEMIR [Concomitant]
  5. DIOVAN [Concomitant]
  6. CLARITIN [Concomitant]
  7. INSULIN [Suspect]
     Route: 065
  8. MOBIC [Concomitant]
  9. CEPHALEXIN [Concomitant]
  10. BYETTA [Concomitant]

REACTIONS (2)
  - CONVULSION [None]
  - GRAND MAL CONVULSION [None]
